FAERS Safety Report 18958478 (Version 2)
Quarter: 2021Q2

REPORT INFORMATION
  Report Type: Spontaneous
  Country: US (occurrence: US)
  Receive Date: 20210302
  Receipt Date: 20210528
  Transmission Date: 20210717
  Serious: Yes (Death, Other)
  Sender: FDA-Public Use
  Company Number: US-SA-2021SA066493

PATIENT

DRUGS (1)
  1. ZANTAC [Suspect]
     Active Substance: RANITIDINE HYDROCHLORIDE
     Dates: start: 200609, end: 202004

REACTIONS (2)
  - Oesophageal carcinoma [Fatal]
  - Nasopharyngeal cancer [Unknown]

NARRATIVE: CASE EVENT DATE: 20201027
